FAERS Safety Report 11197049 (Version 1)
Quarter: 2015Q2

REPORT INFORMATION
  Report Type: Spontaneous
  Country: US (occurrence: US)
  Receive Date: 20150617
  Receipt Date: 20150617
  Transmission Date: 20150821
  Serious: No
  Sender: FDA-Public Use
  Company Number: US-TAKEDA-2014MPI003277

PATIENT
  Age: 56 Year
  Sex: Female

DRUGS (2)
  1. VELCADE [Suspect]
     Active Substance: BORTEZOMIB
     Indication: PLASMA CELL MYELOMA
     Dosage: UNK
     Route: 065
     Dates: start: 2012
  2. DEXAMETHASONE. [Suspect]
     Active Substance: DEXAMETHASONE
     Indication: PLASMA CELL MYELOMA
     Dosage: UNK
     Route: 065
     Dates: start: 2012

REACTIONS (20)
  - Weight increased [Unknown]
  - Malaise [Unknown]
  - Dysgeusia [Unknown]
  - Pharyngeal oedema [Unknown]
  - Confusional state [Unknown]
  - Wound [Unknown]
  - Pruritus [Unknown]
  - Confusional state [Unknown]
  - Oropharyngeal pain [Unknown]
  - Asthenia [Unknown]
  - Vomiting [Unknown]
  - Diarrhoea [Unknown]
  - Incoherent [Unknown]
  - Dehydration [Unknown]
  - Neuralgia [Unknown]
  - Injection site discolouration [Unknown]
  - Rash [Unknown]
  - Amnesia [Unknown]
  - Myalgia [Unknown]
  - Arthralgia [Unknown]

NARRATIVE: CASE EVENT DATE: 201306
